FAERS Safety Report 10946611 (Version 5)
Quarter: 2015Q4

REPORT INFORMATION
  Report Type: Spontaneous
  Country: PL (occurrence: PL)
  Receive Date: 20150323
  Receipt Date: 20151221
  Transmission Date: 20160304
  Serious: Yes (Death, Life-Threatening)
  Sender: FDA-Public Use
  Company Number: PL-B.I. PHARMACEUTICALS,INC./RIDGEFIELD-2015-BI-08371PN

PATIENT
  Age: 86 Year
  Sex: Female
  Weight: 64 kg

DRUGS (7)
  1. METRONIDAZOLE. [Concomitant]
     Active Substance: METRONIDAZOLE
     Indication: GASTROINTESTINAL INFLAMMATION
     Dosage: 1500 MG
     Route: 048
     Dates: start: 20150209
  2. CONTROLOC [Concomitant]
     Active Substance: PANTOPRAZOLE SODIUM
     Indication: GASTRITIS
     Dosage: 40 MG
     Route: 042
     Dates: start: 20150206
  3. DIGOXIN. [Concomitant]
     Active Substance: DIGOXIN
     Indication: ATRIAL FIBRILLATION
     Dosage: 0.25 MG
     Route: 042
     Dates: start: 20150209
  4. PRADAXA [Suspect]
     Active Substance: DABIGATRAN ETEXILATE MESYLATE
     Indication: ATRIAL FIBRILLATION
     Dosage: 220 MG
     Route: 048
     Dates: start: 20150216, end: 20150217
  5. ALBUMINA [Concomitant]
     Indication: DIARRHOEA
  6. ALBUMINA [Concomitant]
     Indication: HYPOPROTEINAEMIA
     Dosage: 100 ML
     Route: 042
     Dates: start: 20150205
  7. ENTEROL [Concomitant]
     Indication: DIARRHOEA
     Dosage: 500 MG
     Route: 048
     Dates: start: 20150210

REACTIONS (3)
  - Haemorrhage urinary tract [Not Recovered/Not Resolved]
  - Lower gastrointestinal haemorrhage [Not Recovered/Not Resolved]
  - Death [Fatal]

NARRATIVE: CASE EVENT DATE: 20150217
